FAERS Safety Report 19690490 (Version 2)
Quarter: 2021Q4

REPORT INFORMATION
  Report Type: Spontaneous
  Country: US (occurrence: US)
  Receive Date: 20210812
  Receipt Date: 20211007
  Transmission Date: 20220303
  Serious: No
  Sender: FDA-Public Use
  Company Number: US-CELGENE-USA-20210801546

PATIENT
  Age: 68 Year
  Sex: Female

DRUGS (2)
  1. THALOMID [Suspect]
     Active Substance: THALIDOMIDE
     Indication: Crohn^s disease
     Dosage: 200 MILLIGRAM
     Route: 048
     Dates: start: 202104
  2. THALOMID [Suspect]
     Active Substance: THALIDOMIDE
     Dosage: 50 MILLIGRAM
     Route: 048
     Dates: start: 20210501, end: 202107

REACTIONS (2)
  - Nausea [Unknown]
  - Somnolence [Unknown]

NARRATIVE: CASE EVENT DATE: 20210508
